FAERS Safety Report 7229959-4 (Version None)
Quarter: 2011Q1

REPORT INFORMATION
  Report Type: 
  Country: None (occurrence: None)
  Receive Date: 20110117
  Receipt Date: 20110110
  Transmission Date: 20110831
  Serious: Yes (Other)
  Sender: FDA-Public Use
  Company Number: US-ELI_LILLY_AND_COMPANY-US201101002366

PATIENT
  Sex: Male

DRUGS (8)
  1. GLIPIZIDE [Concomitant]
     Indication: TYPE 2 DIABETES MELLITUS
  2. COZAAR [Concomitant]
     Indication: HYPERTENSION
  3. ANALGESICS [Concomitant]
     Indication: PAIN
  4. LASIX [Concomitant]
     Indication: HYPERTENSION
  5. TRICOR [Concomitant]
     Indication: HYPERTENSION
  6. BYETTA [Suspect]
     Indication: TYPE 2 DIABETES MELLITUS
     Dosage: 5 UG, 2/D
     Route: 058
  7. BYETTA [Suspect]
     Dosage: 10 UG, 2/D
     Route: 058
     Dates: end: 20110105
  8. METFORMIN HCL [Concomitant]
     Indication: TYPE 2 DIABETES MELLITUS

REACTIONS (19)
  - ANEURYSM [None]
  - FATIGUE [None]
  - WEIGHT DECREASED [None]
  - DIARRHOEA HAEMORRHAGIC [None]
  - MYALGIA [None]
  - MALAISE [None]
  - HAEMATEMESIS [None]
  - BLOOD GLUCOSE INCREASED [None]
  - OFF LABEL USE [None]
  - DECREASED APPETITE [None]
  - STRESS [None]
  - BLOOD GLUCOSE DECREASED [None]
  - ANGER [None]
  - ASTHENIA [None]
  - FLUID RETENTION [None]
  - HYPERTENSION [None]
  - HEADACHE [None]
  - EPISTAXIS [None]
  - POLLAKIURIA [None]
